FAERS Safety Report 14752315 (Version 2)
Quarter: 2019Q1

REPORT INFORMATION
  Report Type: Report from Study
  Country: US (occurrence: US)
  Receive Date: 20180412
  Receipt Date: 20190213
  Transmission Date: 20190417
  Serious: Yes (Disabling, Other)
  Sender: FDA-Public Use
  Company Number: US-REGENERON PHARMACEUTICALS, INC.-2018-20129

PATIENT

DRUGS (2)
  1. EYLEA [Suspect]
     Active Substance: AFLIBERCEPT
     Indication: AGE-RELATED MACULAR DEGENERATION
     Dosage: 2 MG, EVERY 4 WEEKS, OU
     Route: 031
     Dates: start: 20180316, end: 20180316
  2. EYLEA [Suspect]
     Active Substance: AFLIBERCEPT
     Dosage: 2 MG, LAST DOSE
     Route: 031

REACTIONS (3)
  - Blindness [Unknown]
  - Eye inflammation [Recovering/Resolving]
  - Eye pain [Recovered/Resolved]

NARRATIVE: CASE EVENT DATE: 20180316
